FAERS Safety Report 4989147-9 (Version None)
Quarter: 2006Q2

REPORT INFORMATION
  Report Type: 
  Country: None (occurrence: None)
  Receive Date: 20060425
  Receipt Date: 20060413
  Transmission Date: 20061013
  Serious: Yes (Hospitalization, Disabling, Other)
  Sender: FDA-Public Use
  Company Number: 2006051023

PATIENT
  Sex: Female
  Weight: 30.8446 kg

DRUGS (1)
  1. ZOLOFT [Suspect]
     Indication: ILL-DEFINED DISORDER
     Dosage: 50 MG (50 MG, 1 IN 1 D), ORAL
     Route: 048
     Dates: start: 19870101

REACTIONS (7)
  - ANXIETY [None]
  - ARTHROSCOPIC SURGERY [None]
  - BURSITIS [None]
  - CRYING [None]
  - HYPERCHOLESTEROLAEMIA [None]
  - PARANOIA [None]
  - TREATMENT NONCOMPLIANCE [None]
